FAERS Safety Report 11995723 (Version 1)
Quarter: 2016Q1

REPORT INFORMATION
  Report Type: Spontaneous
  Country: US (occurrence: US)
  Receive Date: 20160203
  Receipt Date: 20160203
  Transmission Date: 20160526
  Serious: No
  Sender: FDA-Public Use
  Company Number: US-PFIZER INC-2016060290

PATIENT
  Age: 60 Year
  Sex: Female
  Weight: 56.7 kg

DRUGS (11)
  1. JANUMET [Concomitant]
     Active Substance: METFORMIN HYDROCHLORIDE\SITAGLIPTIN PHOSPHATE
     Indication: DIABETES MELLITUS
     Dosage: 1 DF, 2X/DAY (ONE TABLET IN THE MORNING AND ONE AT NIGHT)
  2. TRAZODONE [Concomitant]
     Active Substance: TRAZODONE HYDROCHLORIDE
     Indication: SLEEP DISORDER
     Dosage: 1 DF, DAILY (ONE PILL AT NIGHT)
  3. LEVEMIR [Concomitant]
     Active Substance: INSULIN DETEMIR
     Indication: DIABETES MELLITUS
     Dosage: 3 UNITS, INJECTION IN STOMACH, BEFORE EACH MEAL
  4. LYRICA [Suspect]
     Active Substance: PREGABALIN
     Indication: PAIN
     Dosage: 50 MG, UNK
     Route: 048
     Dates: start: 2015
  5. LYRICA [Suspect]
     Active Substance: PREGABALIN
     Dosage: 75MG CAPSULE, 6 CAPSULES PER DAY
     Route: 048
     Dates: end: 20160130
  6. GLIPIZIDE. [Concomitant]
     Active Substance: GLIPIZIDE
     Indication: DIABETES MELLITUS
     Dosage: 1 TABLET, DAILY
  7. LIPITOR [Concomitant]
     Active Substance: ATORVASTATIN CALCIUM
     Indication: BLOOD CHOLESTEROL ABNORMAL
     Dosage: 1 DF, DAILY (ONE TABLET AT NIGHT)
  8. IBUPROFEN. [Concomitant]
     Active Substance: IBUPROFEN
     Indication: PAIN
     Dosage: TWO TABLETS A DAY IF NEEDED
  9. VITAMIN D [Concomitant]
     Active Substance: CHOLECALCIFEROL
     Dosage: 1 DF, DAILY (ONE TABLET A DAY)
  10. CITRACAL [Concomitant]
     Active Substance: CALCIUM CITRATE
     Indication: PROPHYLAXIS
     Dosage: 1 TABLET, DAILY
  11. NOVOLOG [Concomitant]
     Active Substance: INSULIN ASPART
     Indication: DIABETES MELLITUS
     Dosage: 24 UNITS, INJECTION IN STOMACH AT NIGHT

REACTIONS (7)
  - Fatigue [Unknown]
  - Bone pain [Unknown]
  - Pain in extremity [Unknown]
  - Insomnia [Unknown]
  - Burning sensation [Unknown]
  - Gait disturbance [Not Recovered/Not Resolved]
  - Drug ineffective [Unknown]
